FAERS Safety Report 5287673-9 (Version None)
Quarter: 2007Q1

REPORT INFORMATION
  Report Type: 
  Country: None (occurrence: None)
  Receive Date: 20070116
  Receipt Date: 20061206
  Transmission Date: 20070707
  Serious: No
  Sender: FDA-Public Use
  Company Number: 2005SP000580

PATIENT
  Age: 68 Year
  Sex: Female
  Weight: 56.6996 kg

DRUGS (2)
  1. LUNESTA [Suspect]
     Indication: INSOMNIA
     Dosage: X1;ORAL
     Route: 048
     Dates: start: 20050503, end: 20050503
  2. VITAMIN CAP [Concomitant]

REACTIONS (3)
  - HEART RATE INCREASED [None]
  - MUSCLE TWITCHING [None]
  - PARADOXICAL DRUG REACTION [None]
